FAERS Safety Report 23744116 (Version 1)
Quarter: 2024Q2

REPORT INFORMATION
  Report Type: Spontaneous
  Country: AU (occurrence: AU)
  Receive Date: 20240415
  Receipt Date: 20240415
  Transmission Date: 20240716
  Serious: Yes (Hospitalization, Other)
  Sender: FDA-Public Use
  Company Number: AU-MYLANLABS-2024M1032523

PATIENT
  Sex: Female

DRUGS (1)
  1. CLOZARIL [Suspect]
     Active Substance: CLOZAPINE
     Indication: Schizophrenia
     Dosage: 250 MILLIGRAM, UNK
     Route: 048
     Dates: start: 20130121, end: 202402

REACTIONS (5)
  - Hypophagia [Unknown]
  - Loss of consciousness [Unknown]
  - Pneumonia [Unknown]
  - Delirium [Unknown]
  - Toxicity to various agents [Unknown]
